FAERS Safety Report 12379514 (Version 1)
Quarter: 2016Q2

REPORT INFORMATION
  Report Type: Spontaneous
  Country: US (occurrence: US)
  Receive Date: 20160517
  Receipt Date: 20160517
  Transmission Date: 20160815
  Serious: No
  Sender: FDA-Public Use
  Company Number: US-009507513-1604USA017312

PATIENT

DRUGS (1)
  1. NEXPLANON [Suspect]
     Active Substance: ETONOGESTREL
     Dosage: STRENGTH-68MG
     Route: 059

REACTIONS (4)
  - Device difficult to use [Unknown]
  - No adverse event [Unknown]
  - Needle issue [Unknown]
  - Product quality issue [Unknown]
